FAERS Safety Report 4907384-6 (Version None)
Quarter: 2006Q1

REPORT INFORMATION
  Report Type: 
  Country: None (occurrence: None)
  Receive Date: 20060208
  Receipt Date: 20060201
  Transmission Date: 20060701
  Serious: Yes (Other)
  Sender: FDA-Public Use
  Company Number: HQWYE633102FEB06

PATIENT
  Age: 50 Year
  Sex: Male

DRUGS (14)
  1. RAPAMUNE [Suspect]
     Dosage: 15 + 10MG 1X PER 1 DAY ORAL
     Route: 048
     Dates: start: 20060119, end: 20060101
  2. RAPAMUNE [Suspect]
     Dosage: 15 + 10MG 1X PER 1 DAY ORAL
     Route: 048
     Dates: start: 20060101, end: 20060126
  3. CELLCEPT [Concomitant]
  4. GANCICLOVIR SODIUM [Concomitant]
  5. SOLU-MEDROL [Concomitant]
  6. ASPIRIN [Concomitant]
  7. LASIX [Concomitant]
  8. SIBONEET       (AMINOACETICA CID/CHLOROPHYLLIN SODIUM COPPER COMPLEX/G [Concomitant]
  9. .......... [Concomitant]
  10. LOSEC (OMEPRAZOLE) [Concomitant]
  11. BACTRIM DS [Concomitant]
  12. MYLANTA                   (ALUMINIUM HYDROXIDE GEL, DRIED/DIMETICONE, [Concomitant]
  13. MYCOSTATIN [Concomitant]
  14. EPOETIN ALFA     (EPOETIN ALFA) [Concomitant]

REACTIONS (3)
  - DRUG INEFFECTIVE [None]
  - INCORRECT DOSE ADMINISTERED [None]
  - KIDNEY TRANSPLANT REJECTION [None]
